FAERS Safety Report 4604818-1 (Version None)
Quarter: 2005Q2

REPORT INFORMATION
  Report Type: 
  Country: None (occurrence: None)
  Receive Date: 20050224
  Receipt Date: 20040205
  Transmission Date: 20051028
  Serious: Yes (Death)
  Sender: FDA-Public Use
  Company Number: 04P-163-0249494-00

PATIENT
  Sex: Male

DRUGS (2)
  1. ABBOKINASE [Suspect]
     Indication: PERIPHERAL OCCLUSIVE DISEASE
     Dates: start: 20040203
  2. HEPARIN [Suspect]
     Indication: PERIPHERAL OCCLUSIVE DISEASE
     Dates: start: 20040203

REACTIONS (1)
  - RETROPERITONEAL HAEMORRHAGE [None]
